FAERS Safety Report 5286655-0 (Version None)
Quarter: 2007Q2

REPORT INFORMATION
  Report Type: 
  Country: None (occurrence: None)
  Receive Date: 20070404
  Receipt Date: 20070328
  Transmission Date: 20071010
  Serious: Yes (Death, Hospitalization)
  Sender: FDA-Public Use
  Company Number: DE-GLAXOSMITHKLINE-D0052775A

PATIENT
  Age: 81 Year
  Sex: Female

DRUGS (16)
  1. LAMICTAL [Suspect]
     Indication: EPILEPSY
     Dosage: 25MG TWICE PER DAY
     Route: 048
  2. SPIRO [Concomitant]
     Dosage: 25MG IN THE MORNING
     Route: 048
  3. METOPROLOL SUCCINATE [Concomitant]
     Dosage: 50MG IN THE MORNING
     Route: 065
  4. EFEROX [Concomitant]
     Dosage: 50MG IN THE MORNING
     Route: 065
  5. FURORESE [Concomitant]
     Dosage: 125MG IN THE MORNING
     Route: 065
  6. VERAPAMIL [Concomitant]
     Dosage: 125MG AT NIGHT
     Route: 065
  7. TETRAZEPAM [Concomitant]
     Dosage: 25MG AT NIGHT
     Route: 048
  8. PREDNISOLONE [Concomitant]
     Dosage: 5MG AT NIGHT
     Route: 048
  9. ASPIRIN [Concomitant]
     Dosage: 100MG AT NIGHT
     Route: 065
  10. NOVAMINSULFON [Concomitant]
     Dosage: 15DROP AS REQUIRED
     Route: 065
  11. IBUPROFEN [Concomitant]
     Dosage: 800MG AS REQUIRED
     Route: 065
  12. DIMENHYDRINATE [Concomitant]
     Indication: NAUSEA
     Route: 048
  13. TEGRETOL [Concomitant]
     Indication: EPILEPSY
     Dosage: 800MG TWICE PER DAY
     Route: 048
  14. BALDRIAN [Concomitant]
     Indication: SEDATION
     Route: 048
  15. DOMPERIDON [Concomitant]
     Route: 065
  16. HOPS + VALERIAN ROOT [Concomitant]
     Indication: SEDATION
     Route: 065

REACTIONS (9)
  - ASTHENIA [None]
  - CONFUSIONAL STATE [None]
  - DEATH [None]
  - FALL [None]
  - MENTAL DISORDER [None]
  - NAUSEA [None]
  - PAIN [None]
  - SCREAMING [None]
  - SOMATISATION DISORDER [None]
